FAERS Safety Report 4867682-1 (Version None)
Quarter: 2005Q4

REPORT INFORMATION
  Report Type: 
  Country: None (occurrence: None)
  Receive Date: 20051222
  Receipt Date: 19990511
  Transmission Date: 20060501
  Serious: Yes (Death, Hospitalization)
  Sender: FDA-Public Use
  Company Number: 8-98057-003G

PATIENT
  Age: 77 Year
  Sex: Male

DRUGS (1)
  1. MYLOTARG [Suspect]
     Indication: ACUTE MYELOID LEUKAEMIA
     Dosage: 9MG/M 2/CYCLE, INTRAVENOUS
     Route: 042
     Dates: start: 19980106, end: 19980121

REACTIONS (6)
  - ASTHENIA [None]
  - GRANULOCYTOPENIA [None]
  - NEUTROPENIA [None]
  - PYREXIA [None]
  - SYNCOPE [None]
  - WHITE BLOOD CELL COUNT DECREASED [None]
